FAERS Safety Report 14798573 (Version 1)
Quarter: 2018Q2

REPORT INFORMATION
  Report Type: Spontaneous
  Country: US (occurrence: US)
  Receive Date: 20180415
  Receipt Date: 20180415
  Transmission Date: 20180711
  Serious: Yes (Disabling)
  Sender: FDA-Public Use
  Company Number: None

PATIENT
  Age: 20 Year
  Sex: Female
  Weight: 58.51 kg

DRUGS (2)
  1. NAPROXIN [Concomitant]
     Active Substance: NAPROXEN
  2. NEXPLANON [Suspect]
     Active Substance: ETONOGESTREL

REACTIONS (12)
  - Neuralgia [None]
  - Arthralgia [None]
  - Depression [None]
  - Mood swings [None]
  - Fatigue [None]
  - Hair growth abnormal [None]
  - Anxiety [None]
  - Fibromyalgia [None]
  - Decreased interest [None]
  - Panic attack [None]
  - Migraine [None]
  - Menstrual disorder [None]

NARRATIVE: CASE EVENT DATE: 20141226
